FAERS Safety Report 15169764 (Version 2)
Quarter: 2018Q3

REPORT INFORMATION
  Report Type: Spontaneous
  Country: CO (occurrence: CO)
  Receive Date: 20180720
  Receipt Date: 20180806
  Transmission Date: 20181010
  Serious: Yes (Other)
  Sender: FDA-Public Use
  Company Number: CO-009507513-1807COL005696

PATIENT
  Sex: Female

DRUGS (1)
  1. IMPLANON [Suspect]
     Active Substance: ETONOGESTREL
     Indication: CONTRACEPTION
     Dosage: 1 IMPLANT, EACH 3 YEARS
     Route: 059
     Dates: start: 2017, end: 20180710

REACTIONS (3)
  - Aura [Unknown]
  - Headache [Unknown]
  - Facial paralysis [Unknown]

NARRATIVE: CASE EVENT DATE: 20180608
